FAERS Safety Report 10203918 (Version 1)
Quarter: 2014Q2

REPORT INFORMATION
  Report Type: Spontaneous
  Country: GB (occurrence: GB)
  Receive Date: 20140529
  Receipt Date: 20140529
  Transmission Date: 20141212
  Serious: Yes (Disabling, Other)
  Sender: FDA-Public Use
  Company Number: PHHY2014GB064711

PATIENT
  Age: 35 Year
  Sex: Female
  Weight: 94 kg

DRUGS (6)
  1. METRONIDAZOLE [Suspect]
     Indication: WOUND INFECTION
     Dosage: 400 MG, TID
     Route: 048
     Dates: start: 20140427, end: 20140429
  2. CERAZETTE [Concomitant]
     Indication: CONTRACEPTION
     Dosage: 1 DF, QD
     Route: 048
     Dates: start: 2010
  3. SOLPADOL [Concomitant]
     Indication: PAIN
     Dosage: 2 DF, QID
     Route: 048
     Dates: start: 20140428, end: 20140429
  4. CO-CODAMOL [Concomitant]
     Dosage: 2 DF, QID
     Route: 048
     Dates: start: 20140424, end: 20140428
  5. CO-AMOXICLAV [Concomitant]
     Dosage: 1 DF, TID
     Route: 048
     Dates: start: 20140424
  6. IBUPROFEN [Concomitant]
     Dosage: 400 MG, TID
     Route: 048
     Dates: start: 20140424

REACTIONS (6)
  - Syncope [Recovered/Resolved]
  - Fatigue [Recovered/Resolved]
  - Mood altered [Recovered/Resolved]
  - Oral disorder [Recovered/Resolved]
  - Dizziness [Recovered/Resolved]
  - Nausea [Recovered/Resolved]
